FAERS Safety Report 5212957-X (Version None)
Quarter: 2007Q1

REPORT INFORMATION
  Report Type: 
  Country: None (occurrence: None)
  Receive Date: 20070119
  Receipt Date: 20070105
  Transmission Date: 20070707
  Serious: Yes (Other)
  Sender: FDA-Public Use
  Company Number: PHBS2007JP00686

PATIENT

DRUGS (1)
  1. ZOMETA [Suspect]
     Indication: BONE LESION
     Dosage: 4 MG, UNK
     Route: 042
     Dates: start: 20061201

REACTIONS (4)
  - DENTAL EXAMINATION ABNORMAL [None]
  - DEVICE MALFUNCTION [None]
  - GINGIVAL RECESSION [None]
  - ORAL MUCOSAL EXFOLIATION [None]
